FAERS Safety Report 13930289 (Version 1)
Quarter: 2017Q3

REPORT INFORMATION
  Report Type: Spontaneous
  Country: GB (occurrence: GB)
  Receive Date: 20170901
  Receipt Date: 20170901
  Transmission Date: 20171127
  Serious: Yes (Death, Hospitalization)
  Sender: FDA-Public Use
  Company Number: GB-SA-2017SA158723

PATIENT
  Age: 52 Year
  Sex: Female

DRUGS (1)
  1. ENOXAPARIN SODIUM. [Suspect]
     Active Substance: ENOXAPARIN SODIUM
     Indication: THROMBOSIS PROPHYLAXIS
     Route: 051
     Dates: start: 20160725

REACTIONS (3)
  - Pulmonary embolism [Fatal]
  - Dyspnoea [Not Recovered/Not Resolved]
  - Medication error [Unknown]
